FAERS Safety Report 15967292 (Version 1)
Quarter: 2019Q1

REPORT INFORMATION
  Report Type: Spontaneous
  Country: US (occurrence: US)
  Receive Date: 20190205
  Receipt Date: 20190205
  Transmission Date: 20190418
  Serious: No
  Sender: FDA-Public Use
  Company Number: None

PATIENT
  Age: 1 Year

DRUGS (1)
  1. HEPARIN [Suspect]
     Active Substance: HEPARIN SODIUM
     Indication: CATHETER MANAGEMENT
     Dates: start: 20190109, end: 20190110

REACTIONS (1)
  - Product label confusion [None]

NARRATIVE: CASE EVENT DATE: 20190109
